FAERS Safety Report 9852421 (Version 1)
Quarter: 2014Q1

REPORT INFORMATION
  Report Type: Spontaneous
  Country: US (occurrence: US)
  Receive Date: 20140129
  Receipt Date: 20140129
  Transmission Date: 20141002
  Serious: No
  Sender: FDA-Public Use
  Company Number: US-BAYER-2014-014859

PATIENT
  Age: 6 Year
  Sex: Female

DRUGS (3)
  1. GADAVIST [Suspect]
     Indication: NUCLEAR MAGNETIC RESONANCE IMAGING
     Dosage: 4 ML, ONCE
     Dates: start: 20140120, end: 20140120
  2. GADAVIST [Suspect]
     Indication: NUCLEAR MAGNETIC RESONANCE IMAGING
     Dosage: 4 ML, ONCE
     Dates: start: 20140121, end: 20140121
  3. GADAVIST [Suspect]
     Indication: NUCLEAR MAGNETIC RESONANCE IMAGING
     Dosage: 4 ML, ONCE
     Dates: start: 20140122, end: 20140122

REACTIONS (1)
  - Urticaria [Recovered/Resolved]
